FAERS Safety Report 9073237 (Version 1)
Quarter: 2013Q1

REPORT INFORMATION
  Report Type: Report from Study
  Country: US (occurrence: US)
  Receive Date: 20130129
  Receipt Date: 20130129
  Transmission Date: 20140127
  Serious: No
  Sender: FDA-Public Use
  Company Number: US-ABBOTT-12P-163-0929321-00

PATIENT
  Age: 65 None
  Sex: Female
  Weight: 90.8 kg

DRUGS (11)
  1. HUMIRA 40 MG/ 0.8 ML PRE-FILLED SYRINGE [Suspect]
     Indication: RHEUMATOID ARTHRITIS
     Route: 058
     Dates: start: 2005
  2. GABAPENTIN [Concomitant]
     Indication: DIABETIC NEUROPATHY
  3. ACTOPLUS MET [Concomitant]
     Indication: DIABETES MELLITUS
     Dosage: 15/850MG 2X/DAY
  4. OMEPRAZOLE [Concomitant]
     Indication: GASTRIC DISORDER
  5. ENALAPRIL [Concomitant]
     Indication: HYPERTENSION
  6. CILOSTAZOL [Concomitant]
     Indication: PROMOTION OF PERIPHERAL CIRCULATION
  7. CLONIDINE [Concomitant]
     Indication: HYPERTENSION
  8. METOPROLOL [Concomitant]
     Indication: TACHYCARDIA
     Dosage: 1 TAB ONCE IN MORNING 1/2 TAB AT BEDTIME
  9. SIMVASTATIN [Concomitant]
     Indication: BLOOD CHOLESTEROL INCREASED
     Dosage: ONCE AT BEDTIME
  10. FUROSEMIDE [Concomitant]
     Indication: DIURETIC THERAPY
     Dosage: ONCE IN THE MORNING
  11. ASPIRIN [Concomitant]
     Indication: PRODUCT USED FOR UNKNOWN INDICATION
     Route: 048

REACTIONS (8)
  - White blood cell count decreased [Unknown]
  - Fatigue [Not Recovered/Not Resolved]
  - Sinusitis [Recovered/Resolved]
  - Injection site pain [Not Recovered/Not Resolved]
  - Hand deformity [Not Recovered/Not Resolved]
  - Fall [Not Recovered/Not Resolved]
  - Arthralgia [Not Recovered/Not Resolved]
  - Arthralgia [Not Recovered/Not Resolved]
